FAERS Safety Report 7748419-5 (Version None)
Quarter: 2011Q3

REPORT INFORMATION
  Report Type: 
  Country: None (occurrence: None)
  Receive Date: 20110913
  Receipt Date: 20110906
  Transmission Date: 20111222
  Serious: Yes (Other)
  Sender: FDA-Public Use
  Company Number: US-AMGEN-USASP2011045505

PATIENT
  Sex: Female

DRUGS (8)
  1. INSULIN [Concomitant]
     Indication: TYPE 1 DIABETES MELLITUS
     Dosage: UNK
  2. DIURETICS [Concomitant]
  3. ARANESP [Suspect]
     Dosage: 100 MUG, UNK
  4. ARANESP [Suspect]
     Dosage: 100 MUG, Q2WK
  5. ANTIHYPERTENSIVES [Concomitant]
  6. ARANESP [Suspect]
     Indication: ANAEMIA
     Dosage: UNK
     Dates: start: 20070101
  7. COREG [Concomitant]
  8. ARANESP [Suspect]
     Dosage: 300 MUG, UNK

REACTIONS (6)
  - MUSCULAR WEAKNESS [None]
  - BEDRIDDEN [None]
  - DYSPNOEA EXERTIONAL [None]
  - MALAISE [None]
  - FATIGUE [None]
  - FEELING ABNORMAL [None]
